FAERS Safety Report 6577671-7 (Version None)
Quarter: 2010Q1

REPORT INFORMATION
  Report Type: 
  Country: None (occurrence: None)
  Receive Date: 20100211
  Receipt Date: 20100203
  Transmission Date: 20100710
  Serious: Yes (Other)
  Sender: FDA-Public Use
  Company Number: PHHY2010BR06208

PATIENT
  Sex: Female

DRUGS (1)
  1. EXELON [Suspect]
     Indication: DEMENTIA ALZHEIMER'S TYPE
     Dosage: ONCE DAILY
     Dates: start: 20070101

REACTIONS (3)
  - CATARACT [None]
  - OPTIC ISCHAEMIC NEUROPATHY [None]
  - VOMITING [None]
